FAERS Safety Report 9537939 (Version 2)
Quarter: 2013Q3

REPORT INFORMATION
  Report Type: Spontaneous
  Country: BE (occurrence: BE)
  Receive Date: 20130919
  Receipt Date: 20130919
  Transmission Date: 20140515
  Serious: Yes (Hospitalization, Other)
  Sender: FDA-Public Use
  Company Number: BE-ABBVIE-13P-013-1132250-00

PATIENT
  Age: 87 Year
  Sex: Male
  Weight: 72 kg

DRUGS (1)
  1. HUMIRA [Suspect]
     Indication: PSORIASIS
     Route: 058
     Dates: start: 20080423, end: 20130807

REACTIONS (3)
  - Large intestinal obstruction [Recovered/Resolved]
  - Adenocarcinoma of colon [Recovered/Resolved]
  - Anaemia [Unknown]
